FAERS Safety Report 8016106-4 (Version None)
Quarter: 2011Q4

REPORT INFORMATION
  Report Type: 
  Country: None (occurrence: None)
  Receive Date: 20111228
  Receipt Date: 20111228
  Transmission Date: 20120403
  Serious: Yes (Hospitalization)
  Sender: FDA-Public Use
  Company Number: None

PATIENT
  Sex: Female
  Weight: 52.1637 kg

DRUGS (1)
  1. ARICEPT [Suspect]
     Dosage: 10 MG.

REACTIONS (4)
  - SYNCOPE [None]
  - DEHYDRATION [None]
  - POLLAKIURIA [None]
  - BLOOD PRESSURE DECREASED [None]
